FAERS Safety Report 7211809-3 (Version None)
Quarter: 2011Q1

REPORT INFORMATION
  Report Type: 
  Country: None (occurrence: None)
  Receive Date: 20110105
  Receipt Date: 20101221
  Transmission Date: 20110831
  Serious: Yes (Other)
  Sender: FDA-Public Use
  Company Number: CO-AMGEN-QUU439145

PATIENT

DRUGS (20)
  1. HYDROCHLOROTHIAZIDE [Concomitant]
     Dosage: 25 MG, 1X/DAY
     Route: 048
  2. LOSARTAN POTASSIUM [Concomitant]
     Indication: HYPERTENSION
     Dosage: 50 MG, UNK
     Route: 048
  3. ARAVA [Concomitant]
     Dosage: 20 MG, 1X/DAY
  4. CALCITRIOL [Concomitant]
     Indication: MEDICAL DIET
     Dosage: UNK UNK, UNK
     Route: 065
  5. AMLODIPINE [Suspect]
     Indication: HYPERTENSION
     Dosage: 5 MG, QD
     Route: 048
     Dates: start: 20080101
  6. AMLODIPINE [Suspect]
     Dosage: 5.0 MG, 1X/DAY
     Route: 048
     Dates: start: 20080101
  7. ARAVA [Concomitant]
     Indication: RHEUMATOID ARTHRITIS
     Dosage: 20 MG, UNK
     Route: 065
     Dates: start: 20060101
  8. METFORMIN HCL [Concomitant]
     Indication: DIABETES MELLITUS
     Dosage: 850 MG, UNK
     Route: 065
  9. METFORMIN HCL [Concomitant]
     Indication: TYPE 2 DIABETES MELLITUS
     Dosage: 850 MG, 3X/DAY
     Route: 065
  10. INSULIN [Concomitant]
     Dosage: 5 IU, 3X/DAY
     Route: 065
     Dates: start: 20010101
  11. HYDROCHLOROTHIAZIDE [Concomitant]
     Indication: HYPERTENSION
     Dosage: 25 MG, UNK
     Route: 048
  12. CALCITRIOL [Concomitant]
     Indication: SUPPLEMENTATION THERAPY
     Dosage: UNK
     Route: 065
  13. CALCIUM CARBONATE [Concomitant]
     Indication: MEDICAL DIET
     Dosage: UNK UNK, UNK
     Route: 065
  14. ISOPHANE INSULIN [Concomitant]
     Indication: TYPE 2 DIABETES MELLITUS
     Dosage: UNK UNK, UNK
     Route: 065
     Dates: start: 20010101
  15. ENBREL [Suspect]
     Indication: RHEUMATOID ARTHRITIS
     Dosage: 50.0 MG, WEEKLY
     Route: 065
     Dates: start: 20090301, end: 20101031
  16. CALCIUM CARBONATE [Concomitant]
     Indication: SUPPLEMENTATION THERAPY
     Dosage: UNK
     Route: 065
  17. ETANERCEPT [Suspect]
     Indication: RHEUMATOID ARTHRITIS
     Dosage: 50 MG, QWK
     Route: 065
     Dates: start: 20090301, end: 20101031
  18. LOSARTAN POTASSIUM [Concomitant]
     Dosage: 50 MG, 1X/DAY
     Route: 048
  19. INSULIN [Concomitant]
     Indication: TYPE 2 DIABETES MELLITUS
     Dosage: 5 IU, UNK
     Route: 065
     Dates: start: 20010101
  20. NPH INSULIN [Concomitant]
     Indication: TYPE 2 DIABETES MELLITUS
     Dosage: 46 IU AND 36IU DAILY
     Route: 065
     Dates: start: 20010101

REACTIONS (4)
  - HYPOKALAEMIA [None]
  - KIDNEY INFECTION [None]
  - FUNGAL INFECTION [None]
  - VARICOSE ULCERATION [None]
